FAERS Safety Report 7362165-1 (Version None)
Quarter: 2011Q1

REPORT INFORMATION
  Report Type: 
  Country: None (occurrence: None)
  Receive Date: 20110315
  Receipt Date: 20110315
  Transmission Date: 20110831
  Serious: Yes (Other)
  Sender: FDA-Public Use
  Company Number: None

PATIENT
  Age: 45 Year
  Sex: Male
  Weight: 77.1115 kg

DRUGS (2)
  1. LEVEMIR [Suspect]
     Indication: DIABETES MELLITUS
     Dosage: 15  2 TIMES DAY
     Dates: start: 19850121, end: 20110214
  2. NOVOLOG [Suspect]
     Indication: DIABETES MELLITUS
     Dosage: 3 TO 5  5 TIMES DAY
     Dates: start: 19850121, end: 20110214

REACTIONS (4)
  - ANGER [None]
  - URTICARIA [None]
  - MOOD SWINGS [None]
  - NEOPLASM MALIGNANT [None]
